FAERS Safety Report 15661106 (Version 1)
Quarter: 2018Q4

REPORT INFORMATION
  Report Type: Report from Study
  Country: ES (occurrence: ES)
  Receive Date: 20181127
  Receipt Date: 20181127
  Transmission Date: 20190205
  Serious: Yes (Hospitalization)
  Sender: FDA-Public Use
  Company Number: ES-PFIZER INC-2018484150

PATIENT
  Age: 85 Year
  Sex: Female

DRUGS (8)
  1. PROVISACOR [Concomitant]
     Active Substance: ROSUVASTATIN
  2. PARACETAMOL [Concomitant]
     Active Substance: ACETAMINOPHEN
  3. SERTRALINE [Concomitant]
     Active Substance: SERTRALINE HYDROCHLORIDE
  4. SINTROM [Concomitant]
     Active Substance: ACENOCOUMAROL
  5. DEPRAX [FLUOXETINE HYDROCHLORIDE] [Concomitant]
  6. TENORMIN [Concomitant]
     Active Substance: ATENOLOL
     Dosage: UNK
  7. GABAPENTIN. [Suspect]
     Active Substance: GABAPENTIN
     Indication: MIXED DEMENTIA
     Route: 048
     Dates: start: 20180222, end: 201802
  8. RISPERDAL [Concomitant]
     Active Substance: RISPERIDONE

REACTIONS (2)
  - Confusional state [Recovered/Resolved]
  - Product use in unapproved indication [Recovered/Resolved]

NARRATIVE: CASE EVENT DATE: 20180222
